FAERS Safety Report 5296136-6 (Version None)
Quarter: 2007Q2

REPORT INFORMATION
  Report Type: 
  Country: None (occurrence: None)
  Receive Date: 20070413
  Receipt Date: 20070406
  Transmission Date: 20071010
  Serious: Yes (Hospitalization)
  Sender: FDA-Public Use
  Company Number: 2007AP02084

PATIENT
  Age: 84 Year
  Sex: Female

DRUGS (4)
  1. CRESTOR [Suspect]
     Route: 048
  2. PAXIL [Concomitant]
     Route: 048
  3. BUP-4 [Concomitant]
     Route: 048
  4. NITROGLYCERIN [Concomitant]
     Route: 041

REACTIONS (2)
  - CHROMATURIA [None]
  - ILL-DEFINED DISORDER [None]
